FAERS Safety Report 15921108 (Version 11)
Quarter: 2020Q2

REPORT INFORMATION
  Report Type: Spontaneous
  Country: JP (occurrence: JP)
  Receive Date: 20190205
  Receipt Date: 20200413
  Transmission Date: 20200713
  Serious: Yes (Death, Hospitalization, Other)
  Sender: FDA-Public Use
  Company Number: JP-009507513-1806JPN002699J

PATIENT
  Age: 74 Year
  Sex: Female
  Weight: 45 kg

DRUGS (1)
  1. KEYTRUDA [Suspect]
     Active Substance: PEMBROLIZUMAB
     Indication: NON-SMALL CELL LUNG CANCER
     Dosage: 200 MILLIGRAM, Q3W
     Route: 041
     Dates: start: 20180613, end: 20181107

REACTIONS (9)
  - Nausea [Unknown]
  - Hepatic failure [Fatal]
  - Altered state of consciousness [Unknown]
  - Taste disorder [Unknown]
  - Gastric mucosal lesion [Recovering/Resolving]
  - Fulminant type 1 diabetes mellitus [Recovered/Resolved with Sequelae]
  - Cholangitis [Unknown]
  - Headache [Recovered/Resolved]
  - Ketoacidosis [Unknown]

NARRATIVE: CASE EVENT DATE: 20180613
